FAERS Safety Report 15837375 (Version 8)
Quarter: 2019Q1

REPORT INFORMATION
  Report Type: Report from Study
  Country: US (occurrence: US)
  Receive Date: 20190117
  Receipt Date: 20190306
  Transmission Date: 20190417
  Serious: Yes (Other)
  Sender: FDA-Public Use
  Company Number: US-BAYER-2019-007055

PATIENT
  Age: 63 Year
  Sex: Female

DRUGS (16)
  1. ASCORBIC ACID. [Concomitant]
     Active Substance: ASCORBIC ACID
     Indication: VITAMIN SUPPLEMENTATION
  2. NITROGLYN [Concomitant]
     Active Substance: NITROGLYCERIN
     Dosage: UNK
  3. DIPHENHYDRAMINE HYDROCHLORIDE. [Concomitant]
     Active Substance: DIPHENHYDRAMINE HYDROCHLORIDE
     Dosage: 25 MG
  4. VASELINE INTENSIVE CARE [PARAFFIN] [Concomitant]
     Dosage: UNK
  5. ASCORBIC ACID. [Concomitant]
     Active Substance: ASCORBIC ACID
     Indication: VITAMIN SUPPLEMENTATION
     Dosage: UNK
  6. OPTISOURCE CHEWABLE VITAMIN + MINERAL SUPPLEMENT [Concomitant]
  7. BENAZEPRIL HCL [Concomitant]
     Active Substance: BENAZEPRIL HYDROCHLORIDE
  8. ATIVAN [Concomitant]
     Active Substance: LORAZEPAM
     Dosage: UNK
  9. METFORMIN [Concomitant]
     Active Substance: METFORMIN HYDROCHLORIDE
     Dosage: UNK
  10. STIVARGA [Suspect]
     Active Substance: REGORAFENIB
     Indication: RECTAL CANCER
     Dosage: 160 MG, QD QD WITH LOW FAT BREAKFAST DAY 1 THROUGH 21 EACH 28 DAYS
     Dates: start: 20190103
  11. ATENOLOL. [Concomitant]
     Active Substance: ATENOLOL
  12. GLIPIZIDE. [Concomitant]
     Active Substance: GLIPIZIDE
  13. NITROFURANTOIN. [Concomitant]
     Active Substance: NITROFURANTOIN
  14. METFORMIN HCL [Concomitant]
     Active Substance: METFORMIN HYDROCHLORIDE
  15. STIVARGA [Suspect]
     Active Substance: REGORAFENIB
     Indication: RECTAL CANCER
     Dosage: DAILY DOSE 120 MG
  16. STIVARGA [Suspect]
     Active Substance: REGORAFENIB
     Indication: RECTAL CANCER
     Dosage: DAILY DOSE 120 MG (FOR 21 DAYS THEN OFF 7 DAYS FOR 28 DAY CYCLE, TAKE WHOLE WITH A LOW FA)
     Route: 048

REACTIONS (23)
  - Diarrhoea [Recovered/Resolved]
  - Headache [None]
  - Palmar-plantar erythrodysaesthesia syndrome [None]
  - Headache [None]
  - Hyperhidrosis [Recovered/Resolved]
  - Constipation [Recovered/Resolved]
  - Product availability issue [Unknown]
  - Insomnia [Recovered/Resolved with Sequelae]
  - Abdominal pain upper [Recovered/Resolved]
  - Skin disorder [None]
  - Otorrhoea [Recovered/Resolved]
  - Rash generalised [Recovered/Resolved]
  - Gastrointestinal sounds abnormal [Recovered/Resolved]
  - Gastritis [None]
  - Haemorrhoids [None]
  - Asthenia [Recovering/Resolving]
  - Hypertension [Unknown]
  - Product dose omission [None]
  - Faeces hard [Not Recovered/Not Resolved]
  - Systolic hypertension [Not Recovered/Not Resolved]
  - Dysphonia [Recovering/Resolving]
  - Pain in extremity [None]
  - Blister [None]

NARRATIVE: CASE EVENT DATE: 20190106
